FAERS Safety Report 17460389 (Version 2)
Quarter: 2020Q1

REPORT INFORMATION
  Report Type: Spontaneous
  Country: US (occurrence: US)
  Receive Date: 20200226
  Receipt Date: 20200302
  Transmission Date: 20200409
  Serious: No
  Sender: FDA-Public Use
  Company Number: US-PFIZER INC-2019074680

PATIENT
  Age: 57 Year
  Sex: Male

DRUGS (1)
  1. PRISTIQ EXTENDED-RELEASE [Suspect]
     Active Substance: DESVENLAFAXINE SUCCINATE
     Indication: MAJOR DEPRESSION
     Dosage: 100 MG, DAILY
     Route: 048

REACTIONS (5)
  - Off label use [Unknown]
  - Abnormal behaviour [Unknown]
  - Intentional product misuse [Unknown]
  - Anger [Unknown]
  - Wrong technique in product usage process [Unknown]
